FAERS Safety Report 5027953-5 (Version None)
Quarter: 2006Q2

REPORT INFORMATION
  Report Type: 
  Country: None (occurrence: None)
  Receive Date: 20060612
  Receipt Date: 20060530
  Transmission Date: 20061013
  Serious: Yes (Death)
  Sender: FDA-Public Use
  Company Number: 163-21880-06020197

PATIENT
  Age: 49 Year
  Sex: Male
  Weight: 73.0291 kg

DRUGS (4)
  1. REVLIMID [Suspect]
     Indication: MULTIPLE MYELOMA
     Dosage: 10 MG, DAILY, ORAL
     Route: 048
     Dates: start: 20060131
  2. AMOXICILLIN [Suspect]
     Dosage: 500 MG
     Dates: start: 20060204
  3. COUMADIN [Concomitant]
  4. OXYCODONE HCL [Concomitant]

REACTIONS (2)
  - INTERNATIONAL NORMALISED RATIO INCREASED [None]
  - NAUSEA [None]
